FAERS Safety Report 9238605 (Version 1)
Quarter: 2013Q2

REPORT INFORMATION
  Report Type: Spontaneous
  Country: US (occurrence: None)
  Receive Date: 20130418
  Receipt Date: 20130418
  Transmission Date: 20140414
  Serious: Yes (Death)
  Sender: FDA-Public Use
  Company Number: None

PATIENT
  Age: 55 Year
  Sex: Male
  Weight: 91 kg

DRUGS (5)
  1. OMONTYS [Suspect]
     Indication: RENAL FAILURE CHRONIC
     Dosage: 3.5MG IVP EVERY 4 WEEKS
     Dates: start: 20130211
  2. OMONTYS [Suspect]
     Indication: ANAEMIA
     Dosage: 3.5MG IVP EVERY 4 WEEKS
     Dates: start: 20130211
  3. ZEMPLAR [Concomitant]
  4. VENOFER [Concomitant]
  5. HEPARIN [Concomitant]

REACTIONS (9)
  - Blood pressure increased [None]
  - Hunger [None]
  - Tremor [None]
  - Malaise [None]
  - Pulse absent [None]
  - Unresponsive to stimuli [None]
  - Respiratory arrest [None]
  - Cyanosis [None]
  - Tremor [None]
